FAERS Safety Report 6867591-2 (Version None)
Quarter: 2010Q3

REPORT INFORMATION
  Report Type: 
  Country: None (occurrence: None)
  Receive Date: 20100722
  Receipt Date: 20090622
  Transmission Date: 20110219
  Serious: No
  Sender: FDA-Public Use
  Company Number: US-BAUSCH-2009BL003081

PATIENT
  Age: 38 Year
  Sex: Male

DRUGS (3)
  1. OPCON-A [Suspect]
     Indication: SEASONAL ALLERGY
     Route: 047
     Dates: start: 20090501, end: 20090619
  2. GEODON [Concomitant]
     Indication: AFFECTIVE DISORDER
     Route: 048
     Dates: start: 20030101
  3. DIVALPROEX SODIUM [Concomitant]
     Indication: AFFECTIVE DISORDER
     Route: 048
     Dates: start: 20030101

REACTIONS (2)
  - BALANCE DISORDER [None]
  - COGNITIVE DISORDER [None]
